FAERS Safety Report 11239146 (Version 1)
Quarter: 2015Q3

REPORT INFORMATION
  Report Type: Spontaneous
  Country: US (occurrence: None)
  Receive Date: 20150701
  Receipt Date: 20150701
  Transmission Date: 20151125
  Serious: No
  Sender: FDA-Public Use
  Company Number: None

PATIENT
  Age: 60 Year
  Sex: Female
  Weight: 111.59 kg

DRUGS (11)
  1. LISINOPRIL. [Suspect]
     Active Substance: LISINOPRIL
     Indication: HYPERTENSION
     Dosage: BY MOUTH
     Dates: start: 20150502, end: 20150529
  2. HYDROXYZINE [Concomitant]
     Active Substance: HYDROXYZINE\HYDROXYZINE HYDROCHLORIDE
  3. FLUOCINONIDE. [Concomitant]
     Active Substance: FLUOCINONIDE
  4. CLOBETASOL [Concomitant]
     Active Substance: CLOBETASOL
  5. AMLODIPINE [Concomitant]
     Active Substance: AMLODIPINE BESYLATE
  6. POLYETHYLENE GLUCOL [Concomitant]
     Active Substance: POLYETHYLENE GLYCOLS
  7. MILNACIPRAN HCL [Concomitant]
  8. FEXOFENADINE [Concomitant]
     Active Substance: FEXOFENADINE\FEXOFENADINE HYDROCHLORIDE
  9. LOSARTAN. [Concomitant]
     Active Substance: LOSARTAN
  10. PATANOL [Concomitant]
     Active Substance: OLOPATADINE HYDROCHLORIDE
  11. FERROUS SULFATE [Concomitant]
     Active Substance: FERROUS SULFATE\FERROUS SULFATE, DRIED

REACTIONS (11)
  - Hyperhidrosis [None]
  - Choking [None]
  - Fatigue [None]
  - Dysphonia [None]
  - Cough [None]
  - Incontinence [None]
  - Rash [None]
  - Dyspnoea [None]
  - Pruritus [None]
  - Wheezing [None]
  - Exercise tolerance decreased [None]

NARRATIVE: CASE EVENT DATE: 201505
